FAERS Safety Report 4914943-3 (Version None)
Quarter: 2006Q1

REPORT INFORMATION
  Report Type: 
  Country: None (occurrence: None)
  Receive Date: 20060217
  Receipt Date: 20060209
  Transmission Date: 20060701
  Serious: Yes (Other)
  Sender: FDA-Public Use
  Company Number: PHNU2006AU00850

PATIENT
  Age: 37 Year
  Sex: Male

DRUGS (4)
  1. CLOZARIL [Suspect]
     Indication: SCHIZOPHRENIA
     Dosage: 400 MG, UNK
     Route: 048
     Dates: start: 20040201, end: 20041201
  2. CLOZARIL [Suspect]
     Dosage: 400 MG/DAY
     Dates: start: 20041201
  3. MIRTAZAPINE [Concomitant]
     Dosage: 30 MG/DAY
     Route: 065
     Dates: start: 20041201
  4. RISPERIDONE [Concomitant]
     Dosage: 1 MG, QD
     Route: 065
     Dates: start: 20050801

REACTIONS (3)
  - ECHOCARDIOGRAM ABNORMAL [None]
  - EJECTION FRACTION DECREASED [None]
  - VENTRICULAR HYPOKINESIA [None]
